FAERS Safety Report 10190402 (Version 1)
Quarter: 2014Q2

REPORT INFORMATION
  Report Type: Spontaneous
  Country: GB (occurrence: GB)
  Receive Date: 20140522
  Receipt Date: 20140522
  Transmission Date: 20141212
  Serious: Yes (Other)
  Sender: FDA-Public Use
  Company Number: GB-009507513-1405GBR008361

PATIENT
  Age: 42 Year
  Sex: Female

DRUGS (2)
  1. ZOCOR TABLETS 20 MG [Suspect]
     Indication: HYPERCHOLESTEROLAEMIA
     Dosage: 20 MG/D
     Route: 048
  2. ZOCOR TABLETS 40MG [Suspect]
     Dosage: UNK
     Route: 048
     Dates: start: 20140416

REACTIONS (5)
  - Eyelid ptosis [Unknown]
  - Myasthenia gravis [Unknown]
  - Rhabdomyolysis [Unknown]
  - Infection [Unknown]
  - Muscular weakness [Unknown]
